FAERS Safety Report 9052716 (Version 1)
Quarter: 2013Q1

REPORT INFORMATION
  Report Type: Spontaneous
  Country: HU (occurrence: HU)
  Receive Date: 20130207
  Receipt Date: 20130207
  Transmission Date: 20140127
  Serious: Yes (Hospitalization, Other)
  Sender: FDA-Public Use
  Company Number: HU-ROCHE-1184143

PATIENT
  Age: 53 Year
  Sex: Male

DRUGS (4)
  1. BEVACIZUMAB [Suspect]
     Indication: METASTASES TO LUNG
     Route: 065
  2. LEUCOVORIN [Suspect]
     Indication: METASTASES TO LUNG
     Route: 065
  3. IRINOTECAN [Suspect]
     Indication: METASTASES TO LUNG
     Route: 065
  4. FLUOROURACIL [Suspect]
     Indication: METASTASES TO LUNG
     Route: 065

REACTIONS (5)
  - Abdominal hernia [Unknown]
  - Hepatic steatosis [Unknown]
  - Liver function test abnormal [Unknown]
  - Drug ineffective [Unknown]
  - Metastases to liver [Unknown]
